FAERS Safety Report 4355593-X (Version None)
Quarter: 2004Q2

REPORT INFORMATION
  Report Type: 
  Country: None (occurrence: None)
  Receive Date: 20040510
  Receipt Date: 20040428
  Transmission Date: 20050107
  Serious: Yes (Hospitalization)
  Sender: FDA-Public Use
  Company Number: FR-GLAXOSMITHKLINE-B0331388A

PATIENT
  Age: 77 Year
  Sex: Male
  Weight: 80 kg

DRUGS (6)
  1. DEROXAT [Suspect]
     Indication: DEPRESSION
     Dosage: 10MG PER DAY
     Route: 048
     Dates: start: 20040326, end: 20040329
  2. LOPERAMIDE HCL [Suspect]
     Dosage: 2MG TWICE PER DAY
     Route: 048
     Dates: start: 20040326, end: 20040404
  3. GLYBURIDE [Suspect]
     Dosage: 2.5MG PER DAY
     Route: 048
  4. SPASFON [Suspect]
     Dosage: 2UNIT THREE TIMES PER DAY
     Route: 048
     Dates: start: 20031001
  5. ACETAMINOPHEN [Suspect]
     Dosage: 500MG TWICE PER DAY
     Route: 048
  6. CHIBRO-PROSCAR [Suspect]
     Indication: PROSTATIC ADENOMA
     Dosage: 5MG PER DAY
     Route: 048

REACTIONS (6)
  - FACE OEDEMA [None]
  - HYPOPROTEINAEMIA [None]
  - NEPHROTIC SYNDROME [None]
  - OEDEMA PERIPHERAL [None]
  - PROTEINURIA [None]
  - WEIGHT INCREASED [None]
